FAERS Safety Report 4913266-6 (Version None)
Quarter: 2006Q1

REPORT INFORMATION
  Report Type: 
  Country: None (occurrence: None)
  Receive Date: 20060215
  Receipt Date: 20050930
  Transmission Date: 20060701
  Serious: Yes (Death, Hospitalization, Disabling)
  Sender: FDA-Public Use
  Company Number: PR-MERCK-0510USA00833

PATIENT
  Age: 58 Year
  Sex: Male
  Weight: 97 kg

DRUGS (4)
  1. VIOXX [Suspect]
     Indication: BACK PAIN
     Route: 048
     Dates: end: 20040306
  2. VIOXX [Suspect]
     Route: 048
     Dates: end: 20040306
  3. VIOXX [Suspect]
     Indication: MUSCLE SPASMS
     Route: 048
     Dates: end: 20040306
  4. VIOXX [Suspect]
     Route: 048
     Dates: end: 20040306

REACTIONS (11)
  - ANXIETY [None]
  - ASTHENIA [None]
  - BRONCHITIS [None]
  - CARDIAC ARREST [None]
  - CHEST PAIN [None]
  - HEAD INJURY [None]
  - HYPOXIA [None]
  - PRESCRIBED OVERDOSE [None]
  - RECTAL HAEMORRHAGE [None]
  - RESPIRATORY FAILURE [None]
  - SPINAL COLUMN STENOSIS [None]
